FAERS Safety Report 15738496 (Version 1)
Quarter: 2018Q4

REPORT INFORMATION
  Report Type: Spontaneous
  Country: US (occurrence: US)
  Receive Date: 20181219
  Receipt Date: 20181219
  Transmission Date: 20190205
  Serious: No
  Sender: FDA-Public Use
  Company Number: US-DRREDDYS-USA/USA/18/0098590

PATIENT
  Sex: Male
  Weight: 72.7 kg

DRUGS (2)
  1. ASPIRIN. [Concomitant]
     Active Substance: ASPIRIN
     Indication: CEREBROVASCULAR ACCIDENT
     Route: 065
  2. NICOTINE. [Suspect]
     Active Substance: NICOTINE
     Indication: SMOKING CESSATION THERAPY
     Route: 062
     Dates: start: 20180411, end: 20180422

REACTIONS (3)
  - Dyspnoea [Not Recovered/Not Resolved]
  - Product complaint [Unknown]
  - Abdominal pain upper [Not Recovered/Not Resolved]
